FAERS Safety Report 10183733 (Version 1)
Quarter: 2014Q2

REPORT INFORMATION
  Report Type: Spontaneous
  Country: US (occurrence: US)
  Receive Date: 20140520
  Receipt Date: 20140520
  Transmission Date: 20141212
  Serious: Yes (Hospitalization, Other)
  Sender: FDA-Public Use
  Company Number: US-BRISTOL-MYERS SQUIBB COMPANY-20729109

PATIENT
  Age: 65 Year
  Sex: Male

DRUGS (1)
  1. BARACLUDE TABS 0.5 MG [Suspect]
     Indication: CHRONIC HEPATITIS B
     Dosage: ONGOING
     Route: 048
     Dates: start: 2000

REACTIONS (6)
  - Fall [Unknown]
  - Haemorrhage [Not Recovered/Not Resolved]
  - Nightmare [Unknown]
  - Gastrointestinal disorder [Not Recovered/Not Resolved]
  - Gait disturbance [Unknown]
  - Nerve injury [Not Recovered/Not Resolved]
